FAERS Safety Report 9060531 (Version 2)
Quarter: 2013Q1

REPORT INFORMATION
  Report Type: Report from Study
  Country: US (occurrence: US)
  Receive Date: 20130212
  Receipt Date: 20130325
  Transmission Date: 20140127
  Serious: Yes (Hospitalization)
  Sender: FDA-Public Use
  Company Number: US-US-EMD SERONO, INC.-7192737

PATIENT
  Age: 42 None
  Sex: Female

DRUGS (1)
  1. REBIF [Suspect]
     Indication: PRODUCT USED FOR UNKNOWN INDICATION
     Route: 058
     Dates: start: 20110506

REACTIONS (11)
  - Diverticulitis [Not Recovered/Not Resolved]
  - Gastritis [Not Recovered/Not Resolved]
  - Duodenitis [Not Recovered/Not Resolved]
  - Lactose intolerance [Not Recovered/Not Resolved]
  - Vertigo [Recovered/Resolved]
  - Clostridium difficile infection [Recovered/Resolved]
  - Abnormal loss of weight [Unknown]
  - Ocular icterus [Recovered/Resolved]
  - Eosinophil count abnormal [Unknown]
  - Nausea [Unknown]
  - Vomiting [Unknown]
